FAERS Safety Report 23846071 (Version 1)
Quarter: 2024Q2

REPORT INFORMATION
  Report Type: Other
  Country: US (occurrence: US)
  Receive Date: 20240512
  Receipt Date: 20240512
  Transmission Date: 20240716
  Serious: No
  Sender: FDA-Public Use
  Company Number: US-TRAVERE-2024TVT00374

PATIENT
  Age: 29 Year
  Sex: Female

DRUGS (2)
  1. FILSPARI [Suspect]
     Active Substance: SPARSENTAN
     Indication: IgA nephropathy
     Route: 048
     Dates: start: 20240403
  2. FILSPARI [Suspect]
     Active Substance: SPARSENTAN
     Dates: end: 20240412

REACTIONS (4)
  - Blood pressure decreased [None]
  - Dizziness [Unknown]
  - Incorrect dose administered [Unknown]
  - Intentional dose omission [Unknown]
